FAERS Safety Report 5918575-X (Version None)
Quarter: 2008Q4

REPORT INFORMATION
  Report Type: 
  Country: None (occurrence: None)
  Receive Date: 20081010
  Receipt Date: 20080929
  Transmission Date: 20090506
  Serious: Yes (Death)
  Sender: FDA-Public Use
  Company Number: WAES 0807USA01488

PATIENT
  Age: 60 Year
  Sex: Male

DRUGS (4)
  1. ZETIA [Suspect]
     Indication: HYPERCHOLESTEROLAEMIA
     Dosage: 10 MG/QOD; PO
     Route: 048
     Dates: start: 20080612, end: 20080702
  2. BEPRIDIL HYDROCHLORIDE [Concomitant]
  3. CARVEDILOL [Concomitant]
  4. WARFARIN POTASSIUM [Concomitant]

REACTIONS (5)
  - CARDIAC ARREST [None]
  - CARDIAC FAILURE CHRONIC [None]
  - FALL [None]
  - MALAISE [None]
  - SUDDEN DEATH [None]
